FAERS Safety Report 4381261-4 (Version None)
Quarter: 2004Q2

REPORT INFORMATION
  Report Type: 
  Country: None (occurrence: None)
  Receive Date: 20040614
  Receipt Date: 20040608
  Transmission Date: 20050107
  Serious: Yes (Death)
  Sender: FDA-Public Use
  Company Number: 2004-116910-NL

PATIENT
  Age: 75 Year
  Sex: Male

DRUGS (4)
  1. MIRTAZAPINE [Suspect]
     Dosage: DF
     Dates: start: 20030301, end: 20040531
  2. PHENYTOIN SODIUM [Suspect]
     Indication: PROCEDURAL COMPLICATION
     Dosage: DF, ORAL
     Route: 048
     Dates: start: 20030301, end: 20040531
  3. SIMVASTATIN [Concomitant]
  4. GLIMEPIRIDE [Concomitant]

REACTIONS (2)
  - DERMATITIS EXFOLIATIVE [None]
  - HEPATORENAL FAILURE [None]
